FAERS Safety Report 9780778 (Version 2)
Quarter: 2013Q4

REPORT INFORMATION
  Report Type: Spontaneous
  Country: DE (occurrence: DE)
  Receive Date: 20131224
  Receipt Date: 20131224
  Transmission Date: 20140711
  Serious: Yes (Other)
  Sender: FDA-Public Use
  Company Number: PHHY2013DE110344

PATIENT
  Age: 74 Year
  Sex: Male
  Weight: 81 kg

DRUGS (2)
  1. SIGNIFOR [Suspect]
     Dosage: 600 UG, BID
     Route: 030
     Dates: start: 20130816, end: 20130829
  2. BETABLOC [Concomitant]

REACTIONS (2)
  - Hyperglycaemia [Recovered/Resolved]
  - Confusional state [Unknown]
